FAERS Safety Report 5954822-6 (Version None)
Quarter: 2008Q4

REPORT INFORMATION
  Report Type: 
  Country: None (occurrence: None)
  Receive Date: 20081031
  Receipt Date: 20080623
  Transmission Date: 20090506
  Serious: No
  Sender: FDA-Public Use
  Company Number: 2008PV035861

PATIENT
  Age: 75 Year
  Sex: Female
  Weight: 88.905 kg

DRUGS (12)
  1. SYMLIN [Suspect]
     Indication: TYPE 1 DIABETES MELLITUS
     Dosage: 60 MCG; TID;SC; 30 MCG; TID; SC
     Route: 058
     Dates: start: 20060201, end: 20070101
  2. SYMLIN [Suspect]
     Indication: TYPE 1 DIABETES MELLITUS
     Dosage: 60 MCG; TID;SC; 30 MCG; TID; SC
     Route: 058
     Dates: start: 20070101
  3. ASPIRIN [Suspect]
     Indication: CARDIAC DISORDER
     Dosage: 81 MG; QD; PO
     Route: 048
  4. NOVOLOG [Concomitant]
  5. LEVOXYL [Concomitant]
  6. HYDROCHLOROTHIAZIDE [Concomitant]
  7. TENORMIN [Concomitant]
  8. AVAPRO [Concomitant]
  9. LISINOPRIL [Concomitant]
  10. CRESTOR [Concomitant]
  11. FOSAMAX [Concomitant]
  12. HUMULIN 70/30 [Concomitant]

REACTIONS (7)
  - ANOREXIA [None]
  - BLOOD GLUCOSE INCREASED [None]
  - CATARACT [None]
  - INFUSION SITE HAEMORRHAGE [None]
  - MALAISE [None]
  - MENTAL IMPAIRMENT [None]
  - NIGHT BLINDNESS [None]
